FAERS Safety Report 4352319-0 (Version None)
Quarter: 2004Q2

REPORT INFORMATION
  Report Type: 
  Country: None (occurrence: None)
  Receive Date: 20040428
  Receipt Date: 20040416
  Transmission Date: 20050107
  Serious: Yes (Other)
  Sender: FDA-Public Use
  Company Number: CA-JNJFOC-20040404052

PATIENT
  Sex: Male

DRUGS (1)
  1. REMICADE [Suspect]
     Indication: CROHN'S DISEASE
     Dosage: INTRAVENOUS
     Route: 042

REACTIONS (4)
  - BACK PAIN [None]
  - DEMYELINATION [None]
  - MOVEMENT DISORDER [None]
  - TYPE III IMMUNE COMPLEX MEDIATED REACTION [None]
